FAERS Safety Report 9196925 (Version 1)
Quarter: 2013Q1

REPORT INFORMATION
  Report Type: Report from Study
  Country: US (occurrence: US)
  Receive Date: 20130328
  Receipt Date: 20130328
  Transmission Date: 20140127
  Serious: Yes (Other)
  Sender: FDA-Public Use
  Company Number: US-ACTELION-A-NJ2013-79558

PATIENT
  Age: 53 Year
  Sex: Female

DRUGS (4)
  1. TRACLEER [Suspect]
     Indication: PULMONARY ARTERIAL HYPERTENSION
     Dosage: UNK
     Route: 048
     Dates: start: 20071024
  2. SILDENAFIL [Concomitant]
  3. REMODULIN [Concomitant]
  4. COUMADIN [Concomitant]

REACTIONS (9)
  - Systemic lupus erythematosus [Unknown]
  - Liver function test abnormal [Unknown]
  - Fall [Unknown]
  - Haemorrhage [Unknown]
  - Contusion [Unknown]
  - Haematoma [Unknown]
  - Dyspnoea [Unknown]
  - Dizziness [Unknown]
  - Loss of consciousness [Unknown]
